FAERS Safety Report 9248572 (Version 1)
Quarter: 2013Q1

REPORT INFORMATION
  Report Type: Spontaneous
  Country: US (occurrence: None)
  Receive Date: 20121113
  Receipt Date: 20121113
  Transmission Date: 20140127
  Serious: Yes (Other)
  Sender: FDA-Public Use
  Company Number: PHEH2012US017028

PATIENT
  Age: 11 Year
  Sex: Male

DRUGS (1)
  1. TRILEPTAL [Suspect]
     Dates: end: 20120825

REACTIONS (1)
  - Convulsion [None]
